FAERS Safety Report 7590960-2 (Version None)
Quarter: 2011Q3

REPORT INFORMATION
  Report Type: 
  Country: None (occurrence: None)
  Receive Date: 20110705
  Receipt Date: 20110629
  Transmission Date: 20111222
  Serious: Yes (Other)
  Sender: FDA-Public Use
  Company Number: PHHY2011BR40069

PATIENT
  Sex: Female
  Weight: 100 kg

DRUGS (1)
  1. PARLODEL [Suspect]
     Indication: BLOOD PROLACTIN INCREASED
     Dosage: 2.5 MG, UNK
     Route: 048
     Dates: end: 20080101

REACTIONS (3)
  - HYPERTENSION [None]
  - WEIGHT INCREASED [None]
  - RETINAL DETACHMENT [None]
